FAERS Safety Report 4320316-7 (Version None)
Quarter: 2004Q1

REPORT INFORMATION
  Report Type: 
  Country: None (occurrence: None)
  Receive Date: 20040317
  Receipt Date: 20040301
  Transmission Date: 20041129
  Serious: Yes (Hospitalization)
  Sender: FDA-Public Use
  Company Number: 8002760

PATIENT
  Age: 45 Year
  Sex: Male
  Weight: 94 kg

DRUGS (3)
  1. KEPPRA [Suspect]
     Indication: EPILEPSY
     Dosage: 2 G PO
     Route: 048
     Dates: start: 20021031, end: 20030306
  2. LABILENO [Concomitant]
  3. TOPIRMATE [Concomitant]

REACTIONS (3)
  - CHOLELITHIASIS [None]
  - HEPATITIS [None]
  - SPLENOMEGALY [None]
